FAERS Safety Report 6920241-9 (Version None)
Quarter: 2010Q3

REPORT INFORMATION
  Report Type: 
  Country: None (occurrence: None)
  Receive Date: 20100811
  Receipt Date: 20100803
  Transmission Date: 20110219
  Serious: Yes (Death, Other)
  Sender: FDA-Public Use
  Company Number: US-AMGEN-QUU426917

PATIENT
  Sex: Male

DRUGS (2)
  1. NPLATE [Suspect]
     Indication: IDIOPATHIC THROMBOCYTOPENIC PURPURA
     Dates: start: 20091211, end: 20091211
  2. CORTICOSTEROIDS [Concomitant]
     Dates: start: 20001201, end: 20091201

REACTIONS (3)
  - CARDIAC DISORDER [None]
  - MULTIMORBIDITY [None]
  - REFUSAL OF TREATMENT BY PATIENT [None]
